FAERS Safety Report 6721110-X (Version None)
Quarter: 2010Q2

REPORT INFORMATION
  Report Type: 
  Country: None (occurrence: None)
  Receive Date: 20100512
  Receipt Date: 20100507
  Transmission Date: 20101027
  Serious: No
  Sender: FDA-Public Use
  Company Number: JP-BAYER-201010464BYL

PATIENT
  Age: 66 Year
  Sex: Male
  Weight: 48 kg

DRUGS (7)
  1. NEXAVAR [Suspect]
     Indication: RENAL CELL CARCINOMA
     Dosage: TOTAL DAILY DOSE: 800 MG  UNIT DOSE: 200 MG
     Route: 048
     Dates: start: 20080409
  2. NEXAVAR [Suspect]
     Dosage: 200-800MG/DAY
     Route: 048
     Dates: start: 20081127, end: 20090930
  3. ULGUT [Concomitant]
     Route: 048
     Dates: start: 20080430
  4. CATLEP [Concomitant]
     Route: 062
     Dates: start: 20080430, end: 20080610
  5. TAGAMET [Concomitant]
     Route: 048
     Dates: start: 20080430
  6. MOBIC [Concomitant]
     Route: 048
     Dates: start: 20080528
  7. LAXOBERON [Concomitant]
     Route: 048
     Dates: start: 20081022

REACTIONS (4)
  - DIARRHOEA [None]
  - EPISTAXIS [None]
  - MALAISE [None]
  - PALMAR-PLANTAR ERYTHRODYSAESTHESIA SYNDROME [None]
